FAERS Safety Report 24211496 (Version 1)
Quarter: 2024Q3

REPORT INFORMATION
  Report Type: Spontaneous
  Country: AT (occurrence: AT)
  Receive Date: 20240814
  Receipt Date: 20240814
  Transmission Date: 20241016
  Serious: Yes (Other)
  Sender: PFIZER
  Company Number: AT-SANDOZ-SDZ2024AT070669

PATIENT
  Sex: Male

DRUGS (6)
  1. METHOTREXATE SODIUM [Suspect]
     Active Substance: METHOTREXATE SODIUM
     Indication: Osteosarcoma
     Dosage: UNK
     Route: 065
     Dates: start: 20221121
  2. METHOTREXATE SODIUM [Suspect]
     Active Substance: METHOTREXATE SODIUM
     Dosage: UNK
     Route: 065
     Dates: start: 20221202
  3. METHOTREXATE SODIUM [Suspect]
     Active Substance: METHOTREXATE SODIUM
     Dosage: UNK
     Route: 065
     Dates: start: 20230102
  4. METHOTREXATE SODIUM [Suspect]
     Active Substance: METHOTREXATE SODIUM
     Dosage: UNK
     Route: 065
     Dates: start: 20230111
  5. METHOTREXATE SODIUM [Suspect]
     Active Substance: METHOTREXATE SODIUM
     Dosage: UNK
     Route: 065
     Dates: start: 20230314
  6. CABOMETYX [Suspect]
     Active Substance: CABOZANTINIB S-MALATE
     Indication: Osteosarcoma
     Dosage: UNK
     Route: 065
     Dates: start: 20230920

REACTIONS (8)
  - Osteosarcoma [Unknown]
  - Disease progression [Unknown]
  - Escherichia sepsis [Unknown]
  - Herpes simplex [Unknown]
  - Mucosal inflammation [Unknown]
  - Skin disorder [Unknown]
  - COVID-19 [Unknown]
  - Pleurisy [Unknown]

NARRATIVE: CASE EVENT DATE: 20221201
